FAERS Safety Report 16694084 (Version 1)
Quarter: 2019Q3

REPORT INFORMATION
  Report Type: Spontaneous
  Country: FR (occurrence: FR)
  Receive Date: 20190812
  Receipt Date: 20190812
  Transmission Date: 20191004
  Serious: Yes (Other)
  Sender: FDA-Public Use
  Company Number: FR-GLAXOSMITHKLINE-FR2019141030

PATIENT
  Age: 68 Year
  Sex: Female
  Weight: 108 kg

DRUGS (1)
  1. NUCALA [Suspect]
     Active Substance: MEPOLIZUMAB
     Indication: ASTHMA
     Dosage: 1 DF, UNK (1 PER MONTH)
     Route: 058
     Dates: start: 20181020, end: 20190220

REACTIONS (4)
  - Salivary gland enlargement [Recovered/Resolved]
  - Back pain [Recovered/Resolved]
  - Drug ineffective [Recovering/Resolving]
  - Asthma [Not Recovered/Not Resolved]

NARRATIVE: CASE EVENT DATE: 20181115
